FAERS Safety Report 4634674-7 (Version None)
Quarter: 2005Q2

REPORT INFORMATION
  Report Type: 
  Country: None (occurrence: None)
  Receive Date: 20050413
  Receipt Date: 20050401
  Transmission Date: 20051028
  Serious: Yes (Hospitalization)
  Sender: FDA-Public Use
  Company Number: 200502147

PATIENT
  Age: 25 Year
  Sex: Female

DRUGS (2)
  1. ALESION (EPINASTINE) [Suspect]
     Indication: DERMATITIS ALLERGIC
     Dosage: MG
     Dates: start: 20050201, end: 20050301
  2. CLARITIN [Concomitant]

REACTIONS (8)
  - COLITIS ISCHAEMIC [None]
  - DIARRHOEA [None]
  - HAEMATOCRIT DECREASED [None]
  - HAEMOGLOBIN DECREASED [None]
  - MELAENA [None]
  - PLATELET COUNT DECREASED [None]
  - RED BLOOD CELL COUNT DECREASED [None]
  - WHITE BLOOD CELL COUNT INCREASED [None]
